FAERS Safety Report 9359239 (Version 2)
Quarter: 2013Q3

REPORT INFORMATION
  Report Type: Spontaneous
  Country: US (occurrence: US)
  Receive Date: 20130620
  Receipt Date: 20130715
  Transmission Date: 20140515
  Serious: No
  Sender: FDA-Public Use
  Company Number: US-PFIZER INC-2013180490

PATIENT
  Sex: Male

DRUGS (3)
  1. TOVIAZ [Suspect]
     Indication: HYPERTONIC BLADDER
     Dosage: 4 MG, UNK
  2. TOVIAZ [Suspect]
     Indication: MICTURITION URGENCY
  3. TOVIAZ [Suspect]
     Indication: URINARY INCONTINENCE

REACTIONS (6)
  - Oesophageal disorder [Unknown]
  - Dry mouth [Unknown]
  - Dysphagia [Unknown]
  - Hiccups [Unknown]
  - Drug ineffective [Unknown]
  - Drug effect incomplete [Unknown]
